FAERS Safety Report 4681390-1 (Version None)
Quarter: 2005Q2

REPORT INFORMATION
  Report Type: 
  Country: None (occurrence: None)
  Receive Date: 20050603
  Receipt Date: 20050518
  Transmission Date: 20051028
  Serious: Yes (Life-Threatening, Other)
  Sender: FDA-Public Use
  Company Number: 2005AP02934

PATIENT
  Age: 16241 Day
  Sex: Female
  Weight: 56.8 kg

DRUGS (1)
  1. XYLOCAINE POLYAMP [Suspect]
     Indication: INFILTRATION ANAESTHESIA
     Dates: start: 20050225, end: 20050225

REACTIONS (1)
  - SHOCK [None]
